FAERS Safety Report 4384243-1 (Version None)
Quarter: 2004Q2

REPORT INFORMATION
  Report Type: 
  Country: None (occurrence: None)
  Receive Date: 20040624
  Receipt Date: 20040610
  Transmission Date: 20050107
  Serious: Yes (Death, Hospitalization, Disabling)
  Sender: FDA-Public Use
  Company Number: PHBS2004IN07655

PATIENT
  Age: 42 Year
  Sex: Female

DRUGS (5)
  1. SIMULECT [Suspect]
     Indication: RENAL TRANSPLANT
     Dosage: 20 MG, ONCE/SINGLE
     Route: 042
     Dates: start: 20040517, end: 20040517
  2. SIMULECT [Suspect]
     Dosage: 20 MG, ONCE/SINGLE
     Route: 042
     Dates: start: 20040521, end: 20040521
  3. SANDIMMUNE [Concomitant]
     Indication: RENAL TRANSPLANT
  4. MYCOPHENOLATE MOFETIL [Concomitant]
     Indication: RENAL TRANSPLANT
  5. CEFOPERAZONE W/SULBACTAM [Concomitant]

REACTIONS (11)
  - ARM AMPUTATION [None]
  - ARTERIAL OCCLUSIVE DISEASE [None]
  - ARTERIAL THROMBOSIS [None]
  - GRAFT DYSFUNCTION [None]
  - MUSCLE NECROSIS [None]
  - PAIN IN EXTREMITY [None]
  - RHABDOMYOLYSIS [None]
  - SEPSIS [None]
  - SKIN DISCOLOURATION [None]
  - SYSTEMIC INFLAMMATORY RESPONSE SYNDROME [None]
  - THROMBECTOMY [None]
